FAERS Safety Report 22340401 (Version 1)
Quarter: 2023Q2

REPORT INFORMATION
  Report Type: Spontaneous
  Country: GB (occurrence: None)
  Receive Date: 20230518
  Receipt Date: 20230518
  Transmission Date: 20230721
  Serious: Yes (Other)
  Sender: FDA-Public Use
  Company Number: GB-Merck Healthcare KGaA-9402502

PATIENT
  Age: 69 Year
  Sex: Male

DRUGS (1)
  1. AVELUMAB [Suspect]
     Active Substance: AVELUMAB
     Indication: Transitional cell cancer of the renal pelvis and ureter
     Route: 042
     Dates: start: 20201126

REACTIONS (3)
  - Deep vein thrombosis [Unknown]
  - Neoplasm recurrence [Unknown]
  - Pruritus [Unknown]

NARRATIVE: CASE EVENT DATE: 20210301
